FAERS Safety Report 8563768-9 (Version None)
Quarter: 2012Q3

REPORT INFORMATION
  Report Type: 
  Country: None (occurrence: None)
  Receive Date: 20120803
  Receipt Date: 20120725
  Transmission Date: 20120928
  Serious: Yes (Other)
  Sender: FDA-Public Use
  Company Number: US-BRISTOL-MYERS SQUIBB COMPANY-16803645

PATIENT
  Sex: Male

DRUGS (1)
  1. ZERIT [Suspect]
     Dosage: RECEIVED FOR 7 YEARS

REACTIONS (2)
  - OSTEONECROSIS [None]
  - LIPOATROPHY [None]
